FAERS Safety Report 5942238-8 (Version None)
Quarter: 2008Q4

REPORT INFORMATION
  Report Type: 
  Country: None (occurrence: None)
  Receive Date: 20081031
  Receipt Date: 20081016
  Transmission Date: 20090506
  Serious: Yes (Hospitalization)
  Sender: FDA-Public Use
  Company Number: 2008PL000163

PATIENT
  Age: 68 Year
  Sex: Male

DRUGS (3)
  1. IMURAN [Suspect]
     Indication: MYASTHENIA GRAVIS
     Dosage: 50 MG; QD;
  2. PYRIDOSTIGMINE BROMIDE [Concomitant]
  3. PREDNISONE TAB [Concomitant]

REACTIONS (17)
  - ABSCESS [None]
  - ACUTE FEBRILE NEUTROPHILIC DERMATOSIS [None]
  - BACK PAIN [None]
  - C-REACTIVE PROTEIN INCREASED [None]
  - CHILLS [None]
  - CONDITION AGGRAVATED [None]
  - ERYTHEMA [None]
  - EYELID PTOSIS [None]
  - INDURATION [None]
  - MALAISE [None]
  - NODULE [None]
  - PYREXIA [None]
  - SHIFT TO THE LEFT [None]
  - SKIN PLAQUE [None]
  - SUBCORNEAL PUSTULAR DERMATOSIS [None]
  - TENDERNESS [None]
  - WHITE BLOOD CELL COUNT INCREASED [None]
